FAERS Safety Report 17785007 (Version 1)
Quarter: 2020Q2

REPORT INFORMATION
  Report Type: Spontaneous
  Country: US (occurrence: US)
  Receive Date: 20200514
  Receipt Date: 20200514
  Transmission Date: 20200714
  Serious: Yes (Hospitalization)
  Sender: FDA-Public Use
  Company Number: None

PATIENT
  Age: 78 Year
  Sex: Male
  Weight: 93 kg

DRUGS (7)
  1. SIMVASTATIN. [Concomitant]
     Active Substance: SIMVASTATIN
     Dates: start: 20030101
  2. LEVOTHYROXINE. [Concomitant]
     Active Substance: LEVOTHYROXINE
     Dates: start: 20190531
  3. ASPIRIN. [Concomitant]
     Active Substance: ASPIRIN
     Dates: start: 20190201
  4. COLLAGEN [Concomitant]
     Active Substance: COLLAGEN
     Dates: start: 20180101
  5. CYANOCOBALAMIN. [Concomitant]
     Active Substance: CYANOCOBALAMIN
     Dates: start: 20000101
  6. NIVOLUMAB [Suspect]
     Active Substance: NIVOLUMAB
     Indication: PROSTATE CANCER
     Dosage: ?          OTHER FREQUENCY:EVERY 28 DAYS;?
     Route: 042
     Dates: start: 20190404
  7. LISINOPRIL. [Concomitant]
     Active Substance: LISINOPRIL
     Dates: start: 20030101

REACTIONS (7)
  - Ventricular arrhythmia [None]
  - Headache [None]
  - Extrasystoles [None]
  - Eye pain [None]
  - Hypoaesthesia [None]
  - Hyperkalaemia [None]
  - Head injury [None]

NARRATIVE: CASE EVENT DATE: 20200513
